FAERS Safety Report 5707421-5 (Version None)
Quarter: 2008Q2

REPORT INFORMATION
  Report Type: 
  Country: None (occurrence: None)
  Receive Date: 20080416
  Receipt Date: 20080410
  Transmission Date: 20081010
  Serious: Yes (Other)
  Sender: FDA-Public Use
  Company Number: ES-BOEHRINGER INGELHEIM GMBH, GERMANY-2008-DE-02176GD

PATIENT
  Age: 35 Year
  Sex: Female

DRUGS (6)
  1. NEVIRAPINE [Suspect]
     Indication: HIV INFECTION CDC CATEGORY A3
  2. LAMIVUDINE [Suspect]
     Indication: HIV INFECTION CDC CATEGORY A3
     Dates: start: 19960101
  3. DIDANOSINE [Suspect]
     Indication: HIV INFECTION CDC CATEGORY A3
     Dates: start: 19990101
  4. EFAVIRENZ [Suspect]
     Indication: HIV INFECTION CDC CATEGORY A3
     Dates: start: 19990101
  5. STAVUDINE [Suspect]
     Indication: HIV INFECTION CDC CATEGORY A3
     Dates: start: 19960101, end: 19990101
  6. INDINIVIR SULFATE [Suspect]
     Indication: HIV INFECTION CDC CATEGORY A3
     Dates: start: 19960101, end: 19990101

REACTIONS (1)
  - ANGIOLIPOMA [None]
